FAERS Safety Report 21853002 (Version 1)
Quarter: 2023Q1

REPORT INFORMATION
  Report Type: Spontaneous
  Country: CA (occurrence: CA)
  Receive Date: 20230112
  Receipt Date: 20230112
  Transmission Date: 20230418
  Serious: Yes (Life-Threatening)
  Sender: FDA-Public Use
  Company Number: CA-OCTA-NGAM00123CA

PATIENT
  Age: 48 Year
  Sex: Female
  Weight: 68 kg

DRUGS (6)
  1. PANZYGA [Suspect]
     Active Substance: HUMAN IMMUNOGLOBULIN G
     Indication: Thrombosis with thrombocytopenia syndrome
     Dosage: 2 DOSES OF 60 G FOR 2 DAYS
     Route: 042
  2. TAMOXIFEN [Concomitant]
     Active Substance: TAMOXIFEN
     Indication: Invasive ductal breast carcinoma
  3. HEPARIN [Concomitant]
     Active Substance: HEPARIN SODIUM
     Indication: Cyanosis
     Route: 042
  4. ARGATROBAN [Concomitant]
     Active Substance: ARGATROBAN
     Indication: Thrombosis with thrombocytopenia syndrome
     Dosage: 0.5 MCG/KG/MIN
  5. CRYOPRECIPITATED ANTIHEMOPHILIC FACTOR (HUMAN) [Concomitant]
     Active Substance: CRYOPRECIPITATED ANTIHEMOPHILIC FACTOR (HUMAN)
     Indication: Product used for unknown indication
     Dosage: TEN UNITS
  6. PREDNISONE [Concomitant]
     Active Substance: PREDNISONE
     Indication: Thrombosis with thrombocytopenia syndrome

REACTIONS (4)
  - Drug ineffective for unapproved indication [Unknown]
  - Peripheral artery thrombosis [Unknown]
  - Aortic thrombosis [Unknown]
  - Condition aggravated [Unknown]
